FAERS Safety Report 8570689-4 (Version None)
Quarter: 2012Q3

REPORT INFORMATION
  Report Type: 
  Country: None (occurrence: None)
  Receive Date: 20120805
  Receipt Date: 20120519
  Transmission Date: 20120928
  Serious: No
  Sender: FDA-Public Use
  Company Number: US-009507513-2012SP036552

PATIENT

DRUGS (2)
  1. CLARITIN-D 24 HOUR [Suspect]
     Dosage: 50 MG, UNKNOWN
     Route: 048
     Dates: start: 20120518, end: 20120519
  2. CLARITIN-D 24 HOUR [Suspect]
     Indication: SINUS CONGESTION
     Dosage: 10 MG, QD
     Route: 048

REACTIONS (4)
  - NAUSEA [None]
  - OVERDOSE [None]
  - VOMITING [None]
  - HEADACHE [None]
